FAERS Safety Report 24680791 (Version 5)
Quarter: 2025Q1

REPORT INFORMATION
  Report Type: Spontaneous
  Country: US (occurrence: US)
  Receive Date: 20241129
  Receipt Date: 20250206
  Transmission Date: 20250409
  Serious: Yes (Other)
  Sender: PFIZER
  Company Number: US-PFIZER INC-PV202400152656

PATIENT
  Age: 81 Year
  Sex: Female
  Weight: 81.5 kg

DRUGS (7)
  1. IBRANCE [Suspect]
     Active Substance: PALBOCICLIB
     Indication: Breast cancer metastatic
     Route: 048
     Dates: start: 20220525
  2. IBRANCE [Suspect]
     Active Substance: PALBOCICLIB
     Indication: Hormone receptor positive HER2 negative breast cancer
     Route: 048
     Dates: start: 20241018
  3. IBRANCE [Suspect]
     Active Substance: PALBOCICLIB
     Indication: Metastases to bone
  4. SKYRIZI [Suspect]
     Active Substance: RISANKIZUMAB-RZAA
  5. LETROZOLE [Concomitant]
     Active Substance: LETROZOLE
     Dosage: UNK, DAILY
  6. DENOSUMAB [Concomitant]
     Active Substance: DENOSUMAB
     Dosage: UNK, EVERY 3 MONTHS
     Dates: start: 20220510
  7. COVID-19 VACCINE [Concomitant]
     Dates: start: 20250101, end: 20250101

REACTIONS (9)
  - Infection susceptibility increased [Unknown]
  - Blood chloride increased [Unknown]
  - Blood urea increased [Unknown]
  - Blood calcium increased [Unknown]
  - Blood glucose increased [Unknown]
  - Platelet count decreased [Unknown]
  - White blood cell count decreased [Unknown]
  - Monocyte count decreased [Unknown]
  - Psoriasis [Unknown]

NARRATIVE: CASE EVENT DATE: 20241029
